FAERS Safety Report 24280420 (Version 6)
Quarter: 2025Q2

REPORT INFORMATION
  Report Type: Report from Study
  Country: CA (occurrence: CA)
  Receive Date: 20240904
  Receipt Date: 20250404
  Transmission Date: 20250717
  Serious: Yes (Hospitalization, Other)
  Sender: TAKEDA
  Company Number: CA-TAKEDA-2024TUS087260

PATIENT
  Sex: Female

DRUGS (12)
  1. VEDOLIZUMAB [Suspect]
     Active Substance: VEDOLIZUMAB
     Indication: Colitis ulcerative
  2. VEDOLIZUMAB [Suspect]
     Active Substance: VEDOLIZUMAB
  3. VEDOLIZUMAB [Suspect]
     Active Substance: VEDOLIZUMAB
  4. VEDOLIZUMAB [Suspect]
     Active Substance: VEDOLIZUMAB
  5. FUROSEMIDE [Concomitant]
     Active Substance: FUROSEMIDE
  6. RISEDRONATE SODIUM [Concomitant]
     Active Substance: RISEDRONATE SODIUM
  7. VITAMIN D NOS [Concomitant]
     Active Substance: CHOLECALCIFEROL\ERGOCALCIFEROL
  8. SULFATRIM [Concomitant]
     Active Substance: SULFAMETHOXAZOLE\TRIMETHOPRIM
  9. ZOPICLONE [Concomitant]
     Active Substance: ZOPICLONE
  10. RIZATRIPTAN [Concomitant]
     Active Substance: RIZATRIPTAN
  11. VENTOLIN [Concomitant]
     Active Substance: ALBUTEROL SULFATE
  12. CORTISONE [Concomitant]
     Active Substance: CORTISONE

REACTIONS (3)
  - Lung carcinoma cell type unspecified recurrent [Not Recovered/Not Resolved]
  - Phlebitis [Unknown]
  - Back pain [Unknown]
